FAERS Safety Report 24836621 (Version 4)
Quarter: 2025Q1

REPORT INFORMATION
  Report Type: Spontaneous
  Country: US (occurrence: US)
  Receive Date: 20250113
  Receipt Date: 20250312
  Transmission Date: 20250408
  Serious: Yes (Other)
  Sender: SANOFI AVENTIS
  Company Number: US-SA-2025SA010051

PATIENT
  Age: 69 Year
  Sex: Female

DRUGS (1)
  1. DUPIXENT [Suspect]
     Active Substance: DUPILUMAB
     Indication: Psoriasis
     Dosage: 300 MG, QOW
     Route: 058
     Dates: start: 202407, end: 20241224

REACTIONS (17)
  - Thrombosis [Unknown]
  - Influenza like illness [Unknown]
  - Cough [Unknown]
  - Productive cough [Unknown]
  - Headache [Unknown]
  - Pyrexia [Unknown]
  - Dysphagia [Unknown]
  - Condition aggravated [Unknown]
  - Asthma [Recovering/Resolving]
  - Respiratory tract infection [Recovered/Resolved]
  - Epistaxis [Recovered/Resolved]
  - Metamorphopsia [Recovered/Resolved]
  - Arthritis [Unknown]
  - Dry eye [Recovered/Resolved]
  - Eye inflammation [Recovered/Resolved]
  - Arthralgia [Recovered/Resolved]
  - Product use in unapproved indication [Unknown]

NARRATIVE: CASE EVENT DATE: 20241201
